FAERS Safety Report 9857597 (Version 1)
Quarter: 2014Q1

REPORT INFORMATION
  Report Type: Spontaneous
  Country: US (occurrence: US)
  Receive Date: 20140131
  Receipt Date: 20140131
  Transmission Date: 20141002
  Serious: Yes (Other)
  Sender: FDA-Public Use
  Company Number: US-ASTRAZENECA-2014SE05885

PATIENT
  Sex: Female

DRUGS (2)
  1. SEROQUEL [Suspect]
     Indication: SCHIZOAFFECTIVE DISORDER
     Route: 048
  2. ANTIDEPRESSANTS [Concomitant]

REACTIONS (4)
  - Tardive dyskinesia [Unknown]
  - Parkinsonism [Unknown]
  - Tremor [Unknown]
  - Intentional drug misuse [Unknown]
